FAERS Safety Report 6171241-0 (Version None)
Quarter: 2009Q2

REPORT INFORMATION
  Report Type: 
  Country: None (occurrence: None)
  Receive Date: 20090429
  Receipt Date: 20090419
  Transmission Date: 20091009
  Serious: Yes (Disabling)
  Sender: FDA-Public Use
  Company Number: GB-BAYER-200911335BNE

PATIENT
  Sex: Female

DRUGS (1)
  1. CANESTEN AF CREAM [Suspect]
     Indication: TINEA PEDIS
     Dosage: APPLIED ON ONLY TWO OCCASSIONS
     Route: 061

REACTIONS (3)
  - BLISTER [None]
  - HYPERSENSITIVITY [None]
  - SKIN EROSION [None]
